FAERS Safety Report 7725686-5 (Version None)
Quarter: 2011Q3

REPORT INFORMATION
  Report Type: 
  Country: None (occurrence: None)
  Receive Date: 20110902
  Receipt Date: 20110829
  Transmission Date: 20111222
  Serious: Yes (Death, Other)
  Sender: FDA-Public Use
  Company Number: PHHY2011BR76791

PATIENT
  Sex: Male

DRUGS (2)
  1. EXELON [Suspect]
     Indication: DEMENTIA ALZHEIMER'S TYPE
     Dosage: 9MG/5CM^2, 1 PATCH DAILY
     Route: 062
  2. EXELON [Suspect]
     Dosage: 18 MG/10CM^2, 1 PATCH DAILY
     Route: 062

REACTIONS (5)
  - CHOLELITHIASIS [None]
  - RETINAL DETACHMENT [None]
  - DEMENTIA ALZHEIMER'S TYPE [None]
  - MALNUTRITION [None]
  - PARKINSON'S DISEASE [None]
